FAERS Safety Report 16091893 (Version 1)
Quarter: 2019Q1

REPORT INFORMATION
  Report Type: Spontaneous
  Country: FI (occurrence: FI)
  Receive Date: 20190319
  Receipt Date: 20190319
  Transmission Date: 20190418
  Serious: Yes (Life-Threatening, Hospitalization, Other)
  Sender: FDA-Public Use
  Company Number: FI-ASTRAZENECA-2019SE30948

PATIENT
  Sex: Male

DRUGS (13)
  1. DIAZEPAM. [Concomitant]
     Active Substance: DIAZEPAM
     Route: 065
  2. VALPROATE BISMUTH [Concomitant]
     Active Substance: VALPROATE BISMUTH
     Indication: EPILEPSY
     Dosage: 600-1000 MG DAILY
     Route: 065
  3. RISPERIDONE. [Suspect]
     Active Substance: RISPERIDONE
     Indication: AGGRESSION
     Route: 065
  4. PIPERIDINE [Concomitant]
     Active Substance: PIPERIDINE
     Indication: SLEEP DISORDER
  5. CLONAZEPAM. [Concomitant]
     Active Substance: CLONAZEPAM
     Route: 065
  6. HALOPERIDOL. [Suspect]
     Active Substance: HALOPERIDOL
     Route: 065
  7. CHLORPROTHIXENE [Suspect]
     Active Substance: CHLORPROTHIXENE
     Indication: SLEEP DISORDER
     Route: 065
  8. MELATONIN [Concomitant]
     Active Substance: MELATONIN
     Indication: SLEEP DISORDER
  9. RISPERIDONE. [Suspect]
     Active Substance: RISPERIDONE
     Indication: AGGRESSION
     Dosage: 0.4MG UNKNOWN
     Route: 065
  10. QUETIAPINE. [Suspect]
     Active Substance: QUETIAPINE
     Indication: ABNORMAL BEHAVIOUR
     Dosage: 150-200MG DAILY
     Route: 048
  11. RISPERIDONE. [Suspect]
     Active Substance: RISPERIDONE
     Indication: AGGRESSION
     Dosage: GRADUALLY INCREASED TO 3 MG DAILY UNKNOWN
     Route: 065
  12. RISPERIDONE. [Suspect]
     Active Substance: RISPERIDONE
     Indication: AGGRESSION
     Dosage: 4.5MG UNKNOWN
     Route: 065
  13. LEVOMEPROMAZINE [Suspect]
     Active Substance: LEVOMEPROMAZINE
     Indication: AGGRESSION
     Route: 065

REACTIONS (8)
  - Intentional self-injury [Recovering/Resolving]
  - Skin laceration [Recovering/Resolving]
  - Tardive dyskinesia [Recovering/Resolving]
  - Sleep disorder due to general medical condition, insomnia type [Recovering/Resolving]
  - Sepsis [Unknown]
  - Wound infection [Recovering/Resolving]
  - Eating disorder [Recovering/Resolving]
  - Abnormal loss of weight [Unknown]
